FAERS Safety Report 14253355 (Version 2)
Quarter: 2017Q4

REPORT INFORMATION
  Report Type: Report from Study
  Country: IN (occurrence: IN)
  Receive Date: 20171206
  Receipt Date: 20171214
  Transmission Date: 20180321
  Serious: Yes (Death, Other)
  Sender: FDA-Public Use
  Company Number: IN-BRISTOL-MYERS SQUIBB COMPANY-BMS-2017-108179

PATIENT
  Age: 46 Year
  Sex: Male

DRUGS (1)
  1. DASATINIB. [Suspect]
     Active Substance: DASATINIB
     Indication: ACUTE LYMPHOCYTIC LEUKAEMIA
     Dosage: 140 MG, QD
     Route: 048
     Dates: start: 20171010, end: 20171021

REACTIONS (5)
  - Malignant neoplasm progression [Fatal]
  - Dyspnoea [Fatal]
  - Sepsis [Unknown]
  - Renal failure [Fatal]
  - Pneumonia [Unknown]

NARRATIVE: CASE EVENT DATE: 20171022
